FAERS Safety Report 9836854 (Version 2)
Quarter: 2014Q1

REPORT INFORMATION
  Report Type: Spontaneous
  Country: ZA (occurrence: ZA)
  Receive Date: 20140123
  Receipt Date: 20140123
  Transmission Date: 20141002
  Serious: Yes (Death, Hospitalization, Other)
  Sender: FDA-Public Use
  Company Number: ZA-ROCHE-1298497

PATIENT
  Sex: Male
  Weight: 37 kg

DRUGS (8)
  1. MABTHERA [Suspect]
     Indication: PRODUCT USED FOR UNKNOWN INDICATION
     Dosage: 4 COURSE
     Route: 065
     Dates: start: 20130211
  2. CYCLOPHOSPHAMIDE [Concomitant]
     Indication: DIFFUSE LARGE B-CELL LYMPHOMA
     Route: 065
  3. DOXORUBICIN [Concomitant]
     Indication: DIFFUSE LARGE B-CELL LYMPHOMA
     Route: 065
  4. VINCRISTINE [Concomitant]
     Indication: DIFFUSE LARGE B-CELL LYMPHOMA
     Route: 065
  5. PREDNISONE [Concomitant]
     Indication: DIFFUSE LARGE B-CELL LYMPHOMA
     Dosage: 100 MG 4 WEEKLY WITH RITUXIMAB
     Route: 065
  6. BACTRIM [Concomitant]
     Indication: PNEUMOCYSTIS JIROVECII PNEUMONIA
     Dosage: 2 TABS DAILY
     Route: 065
  7. ALUVEA [Concomitant]
     Dosage: 200/50 2 TABS BD
     Route: 065
  8. ZIDOVUDINE (AZT) [Concomitant]
     Route: 065

REACTIONS (5)
  - Tuberculosis [Fatal]
  - Disorientation [Unknown]
  - Confusional state [Unknown]
  - Immunosuppression [Unknown]
  - Meningitis tuberculous [Unknown]
